FAERS Safety Report 18090301 (Version 1)
Quarter: 2020Q3

REPORT INFORMATION
  Report Type: Spontaneous
  Country: US (occurrence: US)
  Receive Date: 20200730
  Receipt Date: 20200730
  Transmission Date: 20201103
  Serious: No
  Sender: FDA-Public Use
  Company Number: US-DEXPHARM-20191054

PATIENT
  Age: 99 Year
  Sex: Female
  Weight: 48.53 kg

DRUGS (5)
  1. CARDIZEM [Concomitant]
     Active Substance: DILTIAZEM HYDROCHLORIDE
     Indication: BLOOD PRESSURE ABNORMAL
     Dosage: UNK
     Route: 065
  2. LANSOPRAZOLE 15 MG ORODISPERSIBLE TABLET [Suspect]
     Active Substance: LANSOPRAZOLE
     Indication: GASTROOESOPHAGEAL REFLUX DISEASE
  3. LANSOPRAZOLE 15 MG ORODISPERSIBLE TABLET [Suspect]
     Active Substance: LANSOPRAZOLE
     Indication: GASTRIC ULCER
     Route: 048
     Dates: start: 201909, end: 20191119
  4. LANSOPRAZOLE 15 MG ORODISPERSIBLE TABLET [Suspect]
     Active Substance: LANSOPRAZOLE
     Indication: DYSPEPSIA
  5. NEURONTIN [Concomitant]
     Active Substance: GABAPENTIN
     Indication: FIBROMYALGIA
     Dosage: UNK
     Route: 065

REACTIONS (2)
  - Therapeutic product effect decreased [Unknown]
  - Condition aggravated [Recovering/Resolving]

NARRATIVE: CASE EVENT DATE: 201909
